FAERS Safety Report 7039818-8 (Version None)
Quarter: 2010Q4

REPORT INFORMATION
  Report Type: 
  Country: None (occurrence: None)
  Receive Date: 20101012
  Receipt Date: 20101005
  Transmission Date: 20110411
  Serious: Yes (Other)
  Sender: FDA-Public Use
  Company Number: CA-MERCK-1010USA00606

PATIENT
  Age: 45 Year
  Sex: Male

DRUGS (5)
  1. ISENTRESS [Suspect]
     Route: 048
  2. LAMIVUDINE [Concomitant]
     Route: 048
  3. INTELENCE [Concomitant]
     Route: 048
  4. PREZISTA [Concomitant]
     Route: 048
  5. RITONAVIR [Concomitant]
     Route: 048

REACTIONS (4)
  - ANXIETY [None]
  - DEPRESSION [None]
  - MOOD SWINGS [None]
  - SUICIDAL IDEATION [None]
